FAERS Safety Report 5591055-X (Version None)
Quarter: 2008Q1

REPORT INFORMATION
  Report Type: 
  Country: None (occurrence: None)
  Receive Date: 20080110
  Receipt Date: 20080102
  Transmission Date: 20080703
  Serious: Yes (Other)
  Sender: FDA-Public Use
  Company Number: 130-20785-08010232

PATIENT
  Age: 66 Year
  Sex: Male

DRUGS (7)
  1. THALOMID [Suspect]
     Indication: MULTIPLE MYELOMA
     Dosage: 100 MG, DAILY, ORAL
     Route: 048
  2. DEXAMETHASONE TAB [Suspect]
     Indication: MULTIPLE MYELOMA
     Dosage: 40 MG, 4 CONSECUTIVE DAYS, EVERY MONTH, PER ORAL
     Route: 048
  3. ZOLEDRONIC ACID [Suspect]
     Indication: DRUG USE FOR UNKNOWN INDICATION
     Dosage: 4 MG, 15 MIN PER MONTH, INTRAVENOUS
     Route: 042
  4. CYCLOPHOSPHAMIDE [Suspect]
     Indication: DRUG USE FOR UNKNOWN INDICATION
     Dosage: 1 MG/DAY, EVERY MONTH, INTRAVENOUS
     Route: 042
  5. ERYTHROPOETIN                     (EPOETIN ALFA) [Concomitant]
  6. AMOXICILLIN [Concomitant]
  7. NEUPOGEN [Concomitant]

REACTIONS (5)
  - ACTINOMYCOSIS [None]
  - OSTEOMYELITIS [None]
  - OSTEONECROSIS [None]
  - TOOTH ABSCESS [None]
  - TOOTH EXTRACTION [None]
